FAERS Safety Report 19804348 (Version 1)
Quarter: 2021Q3

REPORT INFORMATION
  Report Type: Spontaneous
  Country: US (occurrence: US)
  Receive Date: 20210908
  Receipt Date: 20210908
  Transmission Date: 20211014
  Serious: No
  Sender: FDA-Public Use
  Company Number: US-FARMAPROD-202105-0768

PATIENT
  Sex: Male

DRUGS (6)
  1. AMLODIPINE [Concomitant]
     Active Substance: AMLODIPINE BESYLATE
     Indication: HYPERTENSION
     Route: 048
  2. OXERVATE [Suspect]
     Active Substance: CENEGERMIN-BKBJ
     Indication: CORNEAL TRANSPLANT
     Route: 047
     Dates: start: 20210404, end: 20210405
  3. GABAPENTIN. [Concomitant]
     Active Substance: GABAPENTIN
     Route: 048
  4. OXERVATE [Suspect]
     Active Substance: CENEGERMIN-BKBJ
     Indication: DRY EYE
     Dosage: FOUR TO THREE TIMES DAILY
     Route: 047
     Dates: start: 20210406, end: 20210506
  5. LOTEMAX [Concomitant]
     Active Substance: LOTEPREDNOL ETABONATE
     Indication: GRAFT VERSUS HOST DISEASE
  6. FAMOTIDINE. [Concomitant]
     Active Substance: FAMOTIDINE
     Indication: GASTROOESOPHAGEAL REFLUX DISEASE
     Route: 048

REACTIONS (3)
  - Off label use [Unknown]
  - Headache [Recovered/Resolved]
  - Eye pain [Recovered/Resolved]
